FAERS Safety Report 5251734-0 (Version None)
Quarter: 2007Q1

REPORT INFORMATION
  Report Type: 
  Country: None (occurrence: None)
  Receive Date: 20070228
  Receipt Date: 20061211
  Transmission Date: 20070707
  Serious: No
  Sender: FDA-Public Use
  Company Number: US-GLAXOSMITHKLINE-A0624389A

PATIENT
  Age: 23 Year
  Sex: Female

DRUGS (3)
  1. LAMICTAL [Suspect]
     Dosage: 50TAB PER DAY
     Route: 048
     Dates: start: 20060926, end: 20061006
  2. ALPRAZOLAM [Concomitant]
  3. CITALOPRAM HYDROBROMIDE [Concomitant]

REACTIONS (2)
  - BLISTER [None]
  - PRURITUS [None]
